FAERS Safety Report 22250619 (Version 1)
Quarter: 2023Q2

REPORT INFORMATION
  Report Type: Spontaneous
  Country: US (occurrence: None)
  Receive Date: 20230424
  Receipt Date: 20230424
  Transmission Date: 20230721
  Serious: Yes (Other)
  Sender: FDA-Public Use
  Company Number: None

PATIENT
  Age: 61 Year
  Sex: Female
  Weight: 83.1 kg

DRUGS (15)
  1. METFORMIN HYDROCHLORIDE EXTENDED-RELEASE 500MG [Suspect]
     Active Substance: METFORMIN HYDROCHLORIDE
     Indication: Type 2 diabetes mellitus
     Dosage: OTHER QUANTITY : 2 TABLET(S);?FREQUENCY : EVERY 12 HOURS;?
     Route: 048
     Dates: start: 20230405, end: 20230424
  2. VOLTAREN [Concomitant]
     Active Substance: DICLOFENAC SODIUM
  3. SYNTHROID [Concomitant]
     Active Substance: LEVOTHYROXINE SODIUM
  4. FAMOTIDINE [Concomitant]
     Active Substance: FAMOTIDINE
  5. PROZAC [Concomitant]
     Active Substance: FLUOXETINE HYDROCHLORIDE
  6. ZENPEP [Concomitant]
     Active Substance: PANCRELIPASE AMYLASE\PANCRELIPASE LIPASE\PANCRELIPASE PROTEASE
  7. LEVBID [Concomitant]
     Active Substance: HYOSCYAMINE SULFATE
  8. LEVSIN [Concomitant]
     Active Substance: HYOSCYAMINE SULFATE
  9. TIGAN [Concomitant]
     Active Substance: TRIMETHOBENZAMIDE HYDROCHLORIDE
  10. relpaz [Concomitant]
  11. immitrex [Concomitant]
  12. multivitamen [Concomitant]
  13. COENZYME Q10 [Concomitant]
     Active Substance: DIETARY SUPPLEMENT\UBIDECARENONE
  14. MAGNESIUM [Concomitant]
     Active Substance: MAGNESIUM
  15. CALCIUM [Concomitant]
     Active Substance: CALCIUM

REACTIONS (9)
  - Hypertension [None]
  - Heart rate increased [None]
  - Back pain [None]
  - Muscle spasms [None]
  - Abdominal pain upper [None]
  - Dysgeusia [None]
  - Hyperhidrosis [None]
  - Flushing [None]
  - Palpitations [None]

NARRATIVE: CASE EVENT DATE: 20230424
